FAERS Safety Report 9773088 (Version 2)
Quarter: 2013Q4

REPORT INFORMATION
  Report Type: Report from Study
  Country: US (occurrence: US)
  Receive Date: 20131219
  Receipt Date: 20131219
  Transmission Date: 20140711
  Serious: Yes (Hospitalization)
  Sender: FDA-Public Use
  Company Number: US-ACTELION-A-US2013-91391

PATIENT
  Age: 56 Year
  Sex: Female

DRUGS (2)
  1. VENTAVIS [Suspect]
     Indication: PULMONARY ARTERIAL HYPERTENSION
     Dosage: UNK
     Route: 055
  2. SILDENAFIL [Concomitant]

REACTIONS (6)
  - Conjunctivitis [Unknown]
  - Oral discomfort [Unknown]
  - Conjunctivitis viral [Unknown]
  - Ocular hyperaemia [Unknown]
  - Eye swelling [Unknown]
  - Hypersensitivity [Unknown]
